FAERS Safety Report 4962837-X (Version None)
Quarter: 2006Q1

REPORT INFORMATION
  Report Type: 
  Country: None (occurrence: None)
  Receive Date: 20060331
  Receipt Date: 20060321
  Transmission Date: 20060701
  Serious: No
  Sender: FDA-Public Use
  Company Number: 2006-140077-NL

PATIENT
  Age: 72 Year
  Sex: Male

DRUGS (8)
  1. MIRTAZAPINE [Suspect]
     Dosage: 15 MG QD
  2. ADVAIR DISKUS 100/50 [Concomitant]
  3. BISOPROLOL [Concomitant]
  4. LASIX [Concomitant]
  5. DOMEPERIDONE [Concomitant]
  6. LORAZEPAM [Concomitant]
  7. LACTULOSE [Concomitant]
  8. PANTOPRAZOLE SODIUM [Concomitant]

REACTIONS (1)
  - HEPATITIS [None]
